FAERS Safety Report 5656046-9 (Version None)
Quarter: 2008Q1

REPORT INFORMATION
  Report Type: 
  Country: None (occurrence: None)
  Receive Date: 20080307
  Receipt Date: 20080226
  Transmission Date: 20080703
  Serious: Yes (Other)
  Sender: FDA-Public Use
  Company Number: US-PFIZER INC-2008019466

PATIENT
  Sex: Female
  Weight: 88.5 kg

DRUGS (6)
  1. CHANTIX [Suspect]
     Indication: SMOKING CESSATION THERAPY
     Route: 048
     Dates: start: 20080108, end: 20080127
  2. MICARDIS [Concomitant]
     Indication: BLOOD PRESSURE
  3. ALL OTHER THERAPEUTIC PRODUCTS [Concomitant]
     Indication: OSTEOARTHRITIS
  4. ZOCOR [Concomitant]
     Indication: BLOOD CHOLESTEROL
  5. ASPIRIN [Concomitant]
  6. ALL OTHER THERAPEUTIC PRODUCTS [Concomitant]
     Indication: MACULAR DEGENERATION

REACTIONS (1)
  - HEART RATE ABNORMAL [None]
